FAERS Safety Report 12525263 (Version 1)
Quarter: 2016Q3

REPORT INFORMATION
  Report Type: Spontaneous
  Country: GB (occurrence: GB)
  Receive Date: 20160704
  Receipt Date: 20160704
  Transmission Date: 20161109
  Serious: Yes (Other)
  Sender: FDA-Public Use
  Company Number: GB-PFIZER INC-2016317402

PATIENT
  Age: 51 Year
  Sex: Female
  Weight: 100 kg

DRUGS (17)
  1. CETIRIZINE [Concomitant]
     Active Substance: CETIRIZINE HYDROCHLORIDE
     Dosage: 1 DF, 1X/DAY
     Dates: start: 20150826
  2. DERMOL /01330701/ [Concomitant]
     Dosage: AS DIRECTED
     Dates: start: 20150826
  3. SODIUM FUSIDAT [Concomitant]
     Active Substance: FUSIDATE SODIUM
     Dosage: APPLY AS DIRECTED
     Dates: start: 20160406, end: 20160413
  4. UNGUENTUM MERCK [Concomitant]
     Dosage: APPLY AS NEEDED
     Dates: start: 20160210
  5. PREGABALIN. [Suspect]
     Active Substance: PREGABALIN
     Dosage: UNK
     Dates: start: 20160210
  6. AMITRIPTYLINE HYDROCHLORIDE. [Concomitant]
     Active Substance: AMITRIPTYLINE HYDROCHLORIDE
     Indication: PAIN
     Dosage: 1 DF, 1X/DAY EACH NIGHT
     Dates: start: 20150826, end: 20160321
  7. EPIPEN [Concomitant]
     Active Substance: EPINEPHRINE
     Dosage: AS DIRECTED
     Dates: start: 20150826
  8. FULTIUM [Concomitant]
     Active Substance: CHOLECALCIFEROL
     Dosage: 1 DF, 1X/DAY FOR 2-3M
     Dates: start: 20160309
  9. SERETIDE [Concomitant]
     Active Substance: FLUTICASONE PROPIONATE\SALMETEROL XINAFOATE
     Dosage: 1 DF, 2X/DAY
     Route: 055
     Dates: start: 20160309
  10. VENTOLIN [Concomitant]
     Active Substance: ALBUTEROL SULFATE
     Dosage: 1 DF, UNK
     Route: 055
     Dates: start: 20150826
  11. FOLIC ACID. [Concomitant]
     Active Substance: FOLIC ACID
     Dosage: 1 DF, WEEKLY
     Dates: start: 20150826
  12. OMEPRAZOLE. [Concomitant]
     Active Substance: OMEPRAZOLE
     Dosage: 1 DF, 1X/DAY AT NIGHT
     Dates: start: 20160309, end: 20160523
  13. TRAMADOL. [Concomitant]
     Active Substance: TRAMADOL
     Dosage: TAKE 1 OR 2 UP TO FOUR TIMES A DAY (MAX 4/DAY IF TAKING THE...
     Dates: start: 20150826
  14. METHOTREXATE. [Concomitant]
     Active Substance: METHOTREXATE
     Dosage: 10 MG, WEEKLY
     Dates: start: 20160210
  15. GABAPENTIN. [Concomitant]
     Active Substance: GABAPENTIN
     Dosage: TAKE AS DIRECTED
     Dates: start: 20160505
  16. NAPROXEN. [Concomitant]
     Active Substance: NAPROXEN
     Dosage: TAKE ONE (OR TWO) 1-2  TIMES/DAY WHEN REQUIRED
     Dates: start: 20150826, end: 20160523
  17. AMOXICILLIN. [Concomitant]
     Active Substance: AMOXICILLIN
     Dosage: 1 DF, 3X/DAY
     Dates: start: 20160406, end: 20160413

REACTIONS (1)
  - Neutropenia [Recovered/Resolved]

NARRATIVE: CASE EVENT DATE: 20160406
